FAERS Safety Report 10046973 (Version 1)
Quarter: 2014Q1

REPORT INFORMATION
  Report Type: Spontaneous
  Country: US (occurrence: US)
  Receive Date: 20140331
  Receipt Date: 20140331
  Transmission Date: 20141002
  Serious: Yes (Other)
  Sender: FDA-Public Use
  Company Number: PHEH2014US006116

PATIENT
  Sex: Female

DRUGS (7)
  1. RECLAST [Suspect]
     Indication: OSTEOPOROSIS
     Dosage: UNK UKN, A YEAR
     Route: 042
     Dates: start: 201204
  2. RECLAST [Suspect]
     Dosage: UNK UKN, A YEAR
     Route: 042
     Dates: start: 201306
  3. ADVAIR [Concomitant]
     Dosage: UNK UKN, UNK
  4. ASA [Concomitant]
     Dosage: UNK UKN, UNK
  5. LISINOPRIL [Concomitant]
     Dosage: UNK UKN, UNK
  6. SIMVASTATIN [Concomitant]
     Dosage: UNK UKN, UNK
  7. CALCIUM [Concomitant]
     Dosage: UNK UKN, UNK

REACTIONS (6)
  - Glaucoma [Unknown]
  - Visual impairment [Unknown]
  - Oral disorder [Unknown]
  - Weight decreased [Unknown]
  - Nasal congestion [Unknown]
  - Swelling face [Recovering/Resolving]
